FAERS Safety Report 8871813 (Version 2)
Quarter: 2013Q2

REPORT INFORMATION
  Report Type: Spontaneous
  Country: US (occurrence: US)
  Receive Date: 20121023
  Receipt Date: 20130412
  Transmission Date: 20140414
  Serious: Yes (Other)
  Sender: FDA-Public Use
  Company Number: US-ASTELLAS-2012US007429

PATIENT
  Age: 41 Year
  Sex: Female

DRUGS (2)
  1. PROGRAF [Suspect]
     Indication: RENAL TRANSPLANT
     Dosage: 1 MG AND 0.5 MG
     Route: 048
     Dates: start: 20110427
  2. ST. JOHN^S WORT /01166801/ [Suspect]
     Indication: PRODUCT USED FOR UNKNOWN INDICATION
     Dosage: UNK
     Route: 065

REACTIONS (4)
  - Hallucination [Not Recovered/Not Resolved]
  - Sleep disorder [Unknown]
  - Abnormal dreams [Not Recovered/Not Resolved]
  - Feeling abnormal [Recovered/Resolved]
